FAERS Safety Report 7795242-1 (Version None)
Quarter: 2011Q4

REPORT INFORMATION
  Report Type: 
  Country: None (occurrence: None)
  Receive Date: 20111004
  Receipt Date: 20110919
  Transmission Date: 20120403
  Serious: Yes (Death)
  Sender: FDA-Public Use
  Company Number: US-ENDO PHARMACEUTICALS INC.-PROP20110060

PATIENT
  Sex: Female

DRUGS (1)
  1. PROPOXYPHENE NAPSYLATE W/ ACETAMINOPHEN [Suspect]
     Indication: PAIN MANAGEMENT
     Dosage: UNK
     Route: 048
     Dates: start: 20090401

REACTIONS (3)
  - MYOCARDIAL INFARCTION [None]
  - ARRHYTHMIA [None]
  - CARDIOVASCULAR DISORDER [None]
